FAERS Safety Report 24794386 (Version 1)
Quarter: 2024Q4

REPORT INFORMATION
  Report Type: Spontaneous
  Country: PT (occurrence: PT)
  Receive Date: 20241231
  Receipt Date: 20241231
  Transmission Date: 20250115
  Serious: Yes (Hospitalization, Other)
  Sender: RANBAXY
  Company Number: PT-SUN PHARMACEUTICAL INDUSTRIES LTD-2024R1-487077

PATIENT
  Age: 70 Year
  Sex: Female

DRUGS (1)
  1. METHOTREXATE [Suspect]
     Active Substance: METHOTREXATE
     Indication: Neurodermatitis
     Dosage: 10 MILLIGRAM, WEEKLY
     Route: 065

REACTIONS (5)
  - Alopecia [Unknown]
  - Myelosuppression [Recovered/Resolved]
  - Overdose [Unknown]
  - Renal impairment [Unknown]
  - Stomatitis [Unknown]
